FAERS Safety Report 9062736 (Version 2)
Quarter: 2013Q2

REPORT INFORMATION
  Report Type: Report from Study
  Country: IL (occurrence: IL)
  Receive Date: 20130128
  Receipt Date: 20130405
  Transmission Date: 20140414
  Serious: Yes (Hospitalization)
  Sender: FDA-Public Use
  Company Number: IL-BRISTOL-MYERS SQUIBB COMPANY-17296872

PATIENT
  Age: 68 Year
  Sex: Female
  Weight: 67 kg

DRUGS (5)
  1. PACLITAXEL [Suspect]
     Indication: OVARIAN CANCER
     Dosage: INTER:30OCT2011(71D)?RESTART:17NOV2011
     Route: 042
     Dates: start: 20110821
  2. CARBOPLATIN [Suspect]
     Indication: OVARIAN CANCER
     Dosage: INTER:30OCT2011(71D)?RESTARTED:17NOV2011
     Route: 042
     Dates: start: 20110821
  3. BEVACIZUMAB [Suspect]
     Indication: OVARIAN CANCER
     Dosage: INTER:30OCT2011(71D)?RESTART:17NOV2011
     Route: 042
     Dates: start: 20110821
  4. TARGIN [Concomitant]
     Dates: start: 20111015
  5. ELATROLET [Concomitant]
     Dosage: TABS
     Dates: start: 20111101, end: 20111101

REACTIONS (1)
  - Headache [Recovered/Resolved]
